FAERS Safety Report 23142352 (Version 1)
Quarter: 2023Q4

REPORT INFORMATION
  Report Type: Report from Study
  Country: DE (occurrence: DE)
  Receive Date: 20231103
  Receipt Date: 20231103
  Transmission Date: 20240110
  Serious: Yes (Congenital Anomaly, Other)
  Sender: FDA-Public Use
  Company Number: DE-VKT-000232

PATIENT
  Age: 38 Week
  Sex: Female

DRUGS (6)
  1. LEVETIRACETAM [Suspect]
     Active Substance: LEVETIRACETAM
     Indication: Foetal exposure during pregnancy
     Route: 064
  2. LAMOTRIGINE [Suspect]
     Active Substance: LAMOTRIGINE
     Indication: Foetal exposure during pregnancy
     Route: 064
  3. FOLIC ACID [Concomitant]
     Active Substance: FOLIC ACID
     Indication: Foetal exposure during pregnancy
     Route: 064
  4. DIMENHYDRINATE [Concomitant]
     Active Substance: DIMENHYDRINATE
     Indication: Foetal exposure during pregnancy
     Route: 064
  5. NICOTINE [Concomitant]
     Active Substance: NICOTINE
     Indication: Foetal exposure during pregnancy
     Route: 064
  6. DALTEPARIN [Concomitant]
     Active Substance: DALTEPARIN
     Indication: Foetal exposure during pregnancy
     Route: 064

REACTIONS (3)
  - Pulmonary artery stenosis [Unknown]
  - Small for dates baby [Unknown]
  - Foetal exposure during pregnancy [Unknown]
